FAERS Safety Report 7629554-9 (Version None)
Quarter: 2011Q3

REPORT INFORMATION
  Report Type: 
  Country: None (occurrence: None)
  Receive Date: 20110722
  Receipt Date: 20110712
  Transmission Date: 20111222
  Serious: Yes (Hospitalization, Other)
  Sender: FDA-Public Use
  Company Number: US-BAYER-201039498NA

PATIENT
  Age: 37 Year
  Sex: Female
  Weight: 66.667 kg

DRUGS (10)
  1. IBUPROFEN [Concomitant]
     Dosage: UNK UNK, PRN
     Route: 048
  2. ALBUTEROL SULFATE AUTOHALER [Concomitant]
  3. YAZ [Suspect]
     Indication: PREMENSTRUAL SYNDROME
  4. ZOVIRAX [Concomitant]
     Indication: HERPES SIMPLEX
     Dosage: UNK
     Dates: start: 20081031
  5. PROTONIX [Concomitant]
     Dosage: 40 MG, QD
  6. PHENAZOPYRIDINE HCL TAB [Concomitant]
     Indication: URINARY TRACT INFECTION
     Dosage: 100 MG, TID
     Dates: start: 20081031
  7. VALIUM [Concomitant]
     Route: 048
  8. MACROBID [Concomitant]
     Indication: URINARY TRACT INFECTION
     Dosage: 100 MG, BID
     Dates: start: 20081001
  9. YAZ [Suspect]
     Indication: CONTRACEPTION
     Dosage: UNK
     Route: 048
     Dates: start: 20080301, end: 20100201
  10. BENTYL [Concomitant]
     Dosage: 10 MG, QID

REACTIONS (5)
  - CHOLECYSTITIS CHRONIC [None]
  - CHOLELITHIASIS [None]
  - ORGAN FAILURE [None]
  - GALLBLADDER NON-FUNCTIONING [None]
  - PAIN [None]
